FAERS Safety Report 4966161-0 (Version None)
Quarter: 2006Q2

REPORT INFORMATION
  Report Type: 
  Country: None (occurrence: None)
  Receive Date: 20060403
  Receipt Date: 20050805
  Transmission Date: 20061013
  Serious: Yes (Death)
  Sender: FDA-Public Use
  Company Number: 2005096757

PATIENT
  Age: 53 Year
  Sex: Male
  Weight: 41 kg

DRUGS (8)
  1. CAMPTOSAR [Suspect]
     Indication: RECTAL CANCER
     Dosage: 100 MG (73.5 MG/M2), INTRAVENOUS
     Route: 042
     Dates: start: 20050629, end: 20050629
  2. TEGAFUR                               /GIMERACIL/OTERACIL POTASSIUM [Concomitant]
  3. SEROTONE                          (AZASETRON HYDROCHLORIDE) [Concomitant]
  4. DECADRON [Concomitant]
  5. AMINOLEBAN          (AMINO ACIDS NOS) [Concomitant]
  6. DOPAMINE HCL [Concomitant]
  7. KAYEXALATE [Concomitant]
  8. HUMULIN R [Concomitant]

REACTIONS (8)
  - ANURIA [None]
  - BLOOD PRESSURE DECREASED [None]
  - DEPRESSED LEVEL OF CONSCIOUSNESS [None]
  - HEPATIC FAILURE [None]
  - HYPERAMMONAEMIA [None]
  - METABOLIC ACIDOSIS [None]
  - RENAL FAILURE [None]
  - THROMBOCYTOPENIA [None]
